FAERS Safety Report 7135792-4 (Version None)
Quarter: 2010Q4

REPORT INFORMATION
  Report Type: 
  Country: None (occurrence: None)
  Receive Date: 20101203
  Receipt Date: 20101124
  Transmission Date: 20110411
  Serious: Yes (Hospitalization)
  Sender: FDA-Public Use
  Company Number: JP-MERCK-1011USA03465

PATIENT
  Age: 86 Year
  Sex: Female

DRUGS (4)
  1. JANUVIA [Suspect]
     Indication: TYPE 2 DIABETES MELLITUS
     Route: 048
     Dates: start: 20100224, end: 20101003
  2. MICARDIS [Concomitant]
     Route: 065
  3. LIPIDIL [Concomitant]
     Route: 065
  4. NIVADIL [Concomitant]
     Route: 065

REACTIONS (1)
  - HYPOGLYCAEMIA [None]
